FAERS Safety Report 20462061 (Version 1)
Quarter: 2022Q1

REPORT INFORMATION
  Report Type: Spontaneous
  Country: US (occurrence: US)
  Receive Date: 20220211
  Receipt Date: 20220211
  Transmission Date: 20220423
  Serious: No
  Sender: FDA-Public Use
  Company Number: US-SA-2022SA043457

PATIENT
  Sex: Male

DRUGS (1)
  1. DUPIXENT [Suspect]
     Active Substance: DUPILUMAB
     Indication: Psoriasis
     Dosage: 300 MG
     Route: 058

REACTIONS (6)
  - Lacrimation increased [Unknown]
  - Ocular hyperaemia [Unknown]
  - General physical condition abnormal [Unknown]
  - Mental status changes [Unknown]
  - Eye pruritus [Unknown]
  - Product use in unapproved indication [Unknown]
